FAERS Safety Report 8444299-3 (Version None)
Quarter: 2012Q2

REPORT INFORMATION
  Report Type: 
  Country: None (occurrence: None)
  Receive Date: 20120618
  Receipt Date: 20120614
  Transmission Date: 20120825
  Serious: Yes (Other)
  Sender: FDA-Public Use
  Company Number: US-PFIZER INC-2012144298

PATIENT
  Sex: Female

DRUGS (2)
  1. SERTRALINE HYDROCHLORIDE [Suspect]
     Dosage: UNK
  2. SERTRALINE HYDROCHLORIDE [Suspect]
     Dosage: 100 MG, UNK

REACTIONS (2)
  - HYPOKINESIA [None]
  - FATIGUE [None]
